FAERS Safety Report 12810958 (Version 1)
Quarter: 2016Q4

REPORT INFORMATION
  Report Type: Spontaneous
  Country: US (occurrence: US)
  Receive Date: 20161005
  Receipt Date: 20161005
  Transmission Date: 20170207
  Serious: Yes (Other)
  Sender: FDA-Public Use
  Company Number: None

PATIENT
  Age: 64 Year
  Sex: Female
  Weight: 58.51 kg

DRUGS (10)
  1. HYDROCODON-ACETAMINOPHN 10-325 GENERIC FOR NORCO QUALITES [Suspect]
     Active Substance: ACETAMINOPHEN\HYDROCODONE BITARTRATE
     Indication: PAIN
     Route: 048
     Dates: start: 20160907, end: 20160912
  2. TOPAMAX [Concomitant]
     Active Substance: TOPIRAMATE
  3. PLAVIX [Concomitant]
     Active Substance: CLOPIDOGREL BISULFATE
  4. FOLIC ACID. [Concomitant]
     Active Substance: FOLIC ACID
  5. CALCIUM [Concomitant]
     Active Substance: CALCIUM
  6. VITAMIN D [Concomitant]
     Active Substance: CHOLECALCIFEROL
  7. KEPPRA XR [Concomitant]
     Active Substance: LEVETIRACETAM
  8. RECLAST [Concomitant]
     Active Substance: ZOLEDRONIC ACID
  9. HYDROCODON-ACETAMINOPHN 10-325 GENERIC FOR NORCO QUALITES [Suspect]
     Active Substance: ACETAMINOPHEN\HYDROCODONE BITARTRATE
     Indication: COMPLEX REGIONAL PAIN SYNDROME
     Route: 048
     Dates: start: 20160907, end: 20160912
  10. ALBUTEROL INHALER [Concomitant]
     Active Substance: ALBUTEROL

REACTIONS (5)
  - Weight decreased [None]
  - Diarrhoea [None]
  - Feeling abnormal [None]
  - Intentional product use issue [None]
  - Adverse reaction [None]

NARRATIVE: CASE EVENT DATE: 20160910
